FAERS Safety Report 9548542 (Version 1)
Quarter: 2013Q3

REPORT INFORMATION
  Report Type: Spontaneous
  Country: US (occurrence: None)
  Receive Date: 20130923
  Receipt Date: 20130923
  Transmission Date: 20140515
  Serious: No
  Sender: FDA-Public Use
  Company Number: None

PATIENT
  Age: 18 Year
  Sex: Female
  Weight: 47.63 kg

DRUGS (1)
  1. SERTRALINE [Suspect]
     Indication: GENERALISED ANXIETY DISORDER
     Dosage: ONCE DAILY TAKEN BY MOUTH
     Dates: start: 20120821, end: 20130919

REACTIONS (1)
  - Dyspepsia [None]
